FAERS Safety Report 9219570 (Version 1)
Quarter: 2013Q2

REPORT INFORMATION
  Report Type: Spontaneous
  Country: FR (occurrence: FR)
  Receive Date: 20130409
  Receipt Date: 20130409
  Transmission Date: 20140414
  Serious: Yes (Life-Threatening, Hospitalization)
  Sender: FDA-Public Use
  Company Number: FR-ROCHE-1205955

PATIENT
  Age: 63 Year
  Sex: Male

DRUGS (8)
  1. ACTILYSE [Suspect]
     Indication: CEREBROVASCULAR ACCIDENT
     Route: 042
     Dates: start: 20110216
  2. METFORMIN [Concomitant]
     Route: 065
  3. KARDEGIC [Concomitant]
     Route: 065
  4. EZETROL [Concomitant]
     Route: 065
  5. INEXIUM [Concomitant]
     Route: 065
  6. APROVEL [Concomitant]
     Route: 065
  7. DIAMICRON [Concomitant]
     Route: 065
  8. JANUVIA [Concomitant]
     Route: 065

REACTIONS (3)
  - Haematemesis [Recovered/Resolved]
  - Melaena [Recovered/Resolved]
  - Abdominal pain upper [Recovered/Resolved]
